FAERS Safety Report 12113472 (Version 1)
Quarter: 2016Q1

REPORT INFORMATION
  Report Type: Spontaneous
  Country: US (occurrence: None)
  Receive Date: 20160224
  Receipt Date: 20160224
  Transmission Date: 20160526
  Serious: Yes (Other)
  Sender: FDA-Public Use
  Company Number: None

PATIENT
  Age: 55 Year
  Sex: Female

DRUGS (1)
  1. AFINITOR [Suspect]
     Active Substance: EVEROLIMUS
     Dosage: ORAL 047 5MG ORAL ONCE DAILY
     Route: 048

REACTIONS (5)
  - Pain [None]
  - Fatigue [None]
  - Stomatitis [None]
  - Headache [None]
  - Dry mouth [None]

NARRATIVE: CASE EVENT DATE: 20160223
